FAERS Safety Report 10446531 (Version 8)
Quarter: 2015Q2

REPORT INFORMATION
  Report Type: Report from Study
  Country: US (occurrence: US)
  Receive Date: 20140911
  Receipt Date: 20150505
  Transmission Date: 20150821
  Serious: Yes (Hospitalization, Other)
  Sender: FDA-Public Use
  Company Number: US-ALEXION PHARMACEUTICALS INC-A201403436

PATIENT

DRUGS (2)
  1. SOLIRIS [Suspect]
     Active Substance: ECULIZUMAB
     Indication: HAEMOLYTIC URAEMIC SYNDROME
     Dosage: UNK
     Route: 042
  2. SOLIRIS [Suspect]
     Active Substance: ECULIZUMAB
     Dosage: UNK
     Route: 042

REACTIONS (13)
  - Arteriovenous fistula thrombosis [Recovered/Resolved]
  - Rhinorrhoea [Recovering/Resolving]
  - Hypoaesthesia [Unknown]
  - Arteriovenous fistula site complication [Not Recovered/Not Resolved]
  - Sensory disturbance [Unknown]
  - Peripheral swelling [Unknown]
  - Cough [Recovering/Resolving]
  - Infectious mononucleosis [Not Recovered/Not Resolved]
  - Oedema peripheral [Recovering/Resolving]
  - Unevaluable event [Unknown]
  - Pyrexia [Recovered/Resolved]
  - Pollakiuria [Not Recovered/Not Resolved]
  - Arteriovenous fistula operation [Unknown]

NARRATIVE: CASE EVENT DATE: 2014
